FAERS Safety Report 16054343 (Version 1)
Quarter: 2019Q1

REPORT INFORMATION
  Report Type: Spontaneous
  Country: US (occurrence: US)
  Receive Date: 20190309
  Receipt Date: 20190309
  Transmission Date: 20190418
  Serious: No
  Sender: FDA-Public Use
  Company Number: US-ASTRAZENECA-2019SE00703

PATIENT
  Sex: Female
  Weight: 89.8 kg

DRUGS (1)
  1. SYMBICORT [Suspect]
     Active Substance: BUDESONIDE\FORMOTEROL FUMARATE DIHYDRATE
     Indication: ASTHMA
     Dosage: 160MCG/4.5MCG, 2 INHALATIONS, TWICE DAILY
     Route: 055

REACTIONS (2)
  - Product quality issue [Unknown]
  - Foreign body in respiratory tract [Unknown]
